FAERS Safety Report 16945348 (Version 1)
Quarter: 2019Q4

REPORT INFORMATION
  Report Type: Spontaneous
  Country: FR (occurrence: FR)
  Receive Date: 20191022
  Receipt Date: 20191022
  Transmission Date: 20200122
  Serious: Yes (Death)
  Sender: FDA-Public Use
  Company Number: FR-ELI_LILLY_AND_COMPANY-FR201910009417

PATIENT
  Age: 70 Year
  Sex: Female
  Weight: 82 kg

DRUGS (10)
  1. UMULINE [Suspect]
     Active Substance: INSULIN HUMAN
     Indication: PRODUCT USED FOR UNKNOWN INDICATION
     Dosage: UNK UNK, UNKNOWN
     Route: 058
     Dates: start: 20190802, end: 20190923
  2. KARDEGIC [Suspect]
     Active Substance: ASPIRIN DL-LYSINE
     Indication: AORTIC BYPASS
     Dosage: 01 DOSAGE FORM, DAILY
     Route: 057
     Dates: end: 20190923
  3. HEPARINE SODIQUE [Suspect]
     Active Substance: HEPARIN SODIUM
     Indication: THROMBOSIS
     Dosage: 700 INTERNATIONAL UNIT, EVERY HOUR
     Route: 058
     Dates: start: 20190812, end: 20190922
  4. NORADRENALINE MYLAN [Suspect]
     Active Substance: NOREPINEPHRINE\NOREPINEPHRINE BITARTRATE
     Indication: ANAPHYLACTIC SHOCK
     Dosage: UNK UNK, UNKNOWN
     Route: 042
     Dates: start: 20190910, end: 20190923
  5. ORBENINE [Suspect]
     Active Substance: CLOXACILLIN SODIUM
     Indication: STAPHYLOCOCCAL INFECTION
     Dosage: 8 G, DAILY
     Route: 042
     Dates: start: 20190904, end: 20190923
  6. ADRENALINE AGUETTANT [Suspect]
     Active Substance: EPINEPHRINE
     Indication: ANAPHYLACTIC SHOCK
     Dosage: UNK UNK, UNKNOWN
     Route: 042
     Dates: start: 20190910, end: 20190914
  7. PANTOPRAZOLE SODIUM. [Suspect]
     Active Substance: PANTOPRAZOLE SODIUM
     Indication: PRODUCT USED FOR UNKNOWN INDICATION
     Dosage: 40 MG, DAILY
     Route: 042
     Dates: start: 20190801, end: 20190923
  8. CANCIDAS [Suspect]
     Active Substance: CASPOFUNGIN ACETATE
     Indication: ENDOCARDITIS CANDIDA
     Dosage: 1 DOSAGE FORM, DAILY
     Route: 042
     Dates: start: 20190909, end: 20190913
  9. CORDARONE [Suspect]
     Active Substance: AMIODARONE HYDROCHLORIDE
     Indication: ATRIAL FIBRILLATION
     Dosage: UNK UNK, UNKNOWN
     Route: 042
     Dates: start: 20190911, end: 20190923
  10. ANCOTIL [Suspect]
     Active Substance: FLUCYTOSINE
     Indication: ENDOCARDITIS CANDIDA
     Dosage: 50 MG/KG, DAILY
     Route: 042
     Dates: start: 20190909, end: 20190918

REACTIONS (5)
  - Haemoptysis [Fatal]
  - Melaena [Fatal]
  - Septic shock [Fatal]
  - Pancytopenia [Fatal]
  - Pulmonary alveolar haemorrhage [Fatal]

NARRATIVE: CASE EVENT DATE: 20190913
